FAERS Safety Report 12418594 (Version 1)
Quarter: 2016Q2

REPORT INFORMATION
  Report Type: Spontaneous
  Country: US (occurrence: None)
  Receive Date: 20160527
  Receipt Date: 20160527
  Transmission Date: 20160815
  Serious: Yes (Hospitalization)
  Sender: FDA-Public Use
  Company Number: None

PATIENT
  Age: 83 Year
  Sex: Male
  Weight: 105.24 kg

DRUGS (13)
  1. POTASSIUM CHLORIDE. [Concomitant]
     Active Substance: POTASSIUM CHLORIDE
  2. NUTRA LIFE MILK THISTLE [Concomitant]
  3. GINGER. [Concomitant]
     Active Substance: GINGER
  4. ASPIRIN. [Concomitant]
     Active Substance: ASPIRIN
  5. ANTIHISTAMINES [Concomitant]
     Active Substance: ANTIHISTAMINES NOS
  6. HARVONI [Suspect]
     Active Substance: LEDIPASVIR\SOFOSBUVIR
     Indication: HEPATITIS C
     Dosage: 90-400 1X DAILY ORAL
     Route: 048
     Dates: start: 20150624, end: 20151209
  7. FUROSEMIDE. [Concomitant]
     Active Substance: FUROSEMIDE
  8. TRAMADOL. [Concomitant]
     Active Substance: TRAMADOL
  9. FINASTERIDE. [Concomitant]
     Active Substance: FINASTERIDE
  10. ENALAPRIL [Concomitant]
     Active Substance: ENALAPRIL
  11. FISH OIL [Concomitant]
     Active Substance: FISH OIL
  12. DILTIAZEM [Concomitant]
     Active Substance: DILTIAZEM
  13. MULTIVITAMIN [Concomitant]
     Active Substance: VITAMINS

REACTIONS (5)
  - Acute kidney injury [None]
  - Gastrointestinal haemorrhage [None]
  - Leukocytosis [None]
  - Lactic acidosis [None]
  - Encephalopathy [None]

NARRATIVE: CASE EVENT DATE: 20160126
